FAERS Safety Report 7940566-8 (Version None)
Quarter: 2011Q4

REPORT INFORMATION
  Report Type: 
  Country: None (occurrence: None)
  Receive Date: 20111114
  Receipt Date: 20110621
  Transmission Date: 20120403
  Serious: Yes (Hospitalization, Other)
  Sender: FDA-Public Use
  Company Number: 2011S1000417

PATIENT
  Age: 80 Year
  Sex: Female

DRUGS (2)
  1. CUBICIN [Suspect]
     Indication: POST PROCEDURAL INFECTION
     Dosage: 500 MG;Q24H
  2. VANCOMYCIN [Concomitant]

REACTIONS (1)
  - STEVENS-JOHNSON SYNDROME [None]
